FAERS Safety Report 22115321 (Version 1)
Quarter: 2023Q1

REPORT INFORMATION
  Report Type: Spontaneous
  Country: AR (occurrence: AR)
  Receive Date: 20230320
  Receipt Date: 20230320
  Transmission Date: 20230418
  Serious: Yes (Other)
  Sender: FDA-Public Use
  Company Number: AR-ELI_LILLY_AND_COMPANY-AR202303004931

PATIENT
  Sex: Female
  Weight: 55 kg

DRUGS (1)
  1. VERZENIO [Suspect]
     Active Substance: ABEMACICLIB
     Indication: Breast cancer
     Dosage: 300 MG, DAILY
     Route: 048
     Dates: start: 20220520, end: 20230301

REACTIONS (2)
  - Anaemia [Unknown]
  - Leukopenia [Unknown]
